FAERS Safety Report 17488104 (Version 1)
Quarter: 2020Q1

REPORT INFORMATION
  Report Type: Spontaneous
  Country: US (occurrence: US)
  Receive Date: 20200302
  Receipt Date: 20200302
  Transmission Date: 20200409
  Serious: No
  Sender: FDA-Public Use
  Company Number: None

PATIENT
  Age: 58 Year
  Sex: Female
  Weight: 108.45 kg

DRUGS (10)
  1. CYMBALTA [Concomitant]
     Active Substance: DULOXETINE HYDROCHLORIDE
     Dates: start: 20191125
  2. GABAPENTIN. [Concomitant]
     Active Substance: GABAPENTIN
     Dates: start: 20200123
  3. TRAMADOL. [Concomitant]
     Active Substance: TRAMADOL
     Dates: start: 20191125
  4. VOLTAREN [Concomitant]
     Active Substance: DICLOFENAC SODIUM
     Dates: start: 20200123
  5. JAKAFI [Suspect]
     Active Substance: RUXOLITINIB
     Route: 048
     Dates: start: 20190806
  6. ALBUTEROL. [Concomitant]
     Active Substance: ALBUTEROL
     Dates: start: 20191125
  7. ERGOCALCIFEROL. [Concomitant]
     Active Substance: ERGOCALCIFEROL
     Dates: start: 20200123
  8. JAKAFI [Concomitant]
     Active Substance: RUXOLITINIB
     Dates: start: 20191125
  9. OSCAL [Concomitant]
     Active Substance: CALCIUM CARBONATE
     Dates: start: 20191125
  10. VITAMIN C [Concomitant]
     Active Substance: ASCORBIC ACID
     Dates: start: 20200123

REACTIONS (6)
  - Product container issue [None]
  - Fall [None]
  - Abdominal pain upper [None]
  - Physical product label issue [None]
  - Product lot number issue [None]
  - Influenza [None]

NARRATIVE: CASE EVENT DATE: 20200302
